FAERS Safety Report 5634343-0 (Version None)
Quarter: 2008Q1

REPORT INFORMATION
  Report Type: 
  Country: None (occurrence: None)
  Receive Date: 20080222
  Receipt Date: 20080122
  Transmission Date: 20080703
  Serious: No
  Sender: FDA-Public Use
  Company Number: US-BAYER-200812037NA

PATIENT
  Age: 40 Year
  Sex: Female
  Weight: 67 kg

DRUGS (1)
  1. MIRENA [Suspect]
     Indication: CONTRACEPTION
     Route: 015
     Dates: start: 20071105, end: 20071207

REACTIONS (5)
  - ALOPECIA [None]
  - ANXIETY [None]
  - LIBIDO DECREASED [None]
  - MOOD SWINGS [None]
  - WEIGHT INCREASED [None]
